FAERS Safety Report 9147286 (Version 2)
Quarter: 2013Q1

REPORT INFORMATION
  Report Type: Spontaneous
  Country: TR (occurrence: TR)
  Receive Date: 20130307
  Receipt Date: 20130322
  Transmission Date: 20140127
  Serious: Yes (Other)
  Sender: FDA-Public Use
  Company Number: TR-ROCHE-1198655

PATIENT
  Age: 63 Year
  Sex: Female

DRUGS (2)
  1. LUCENTIS [Suspect]
     Indication: DIABETIC RETINAL OEDEMA
     Dosage: 0.05 MG/ML
     Route: 050
     Dates: start: 20130130, end: 20130130
  2. EXOCIN [Concomitant]

REACTIONS (1)
  - Posterior capsule rupture [Recovered/Resolved]
